FAERS Safety Report 8415847-4 (Version None)
Quarter: 2012Q2

REPORT INFORMATION
  Report Type: 
  Country: None (occurrence: None)
  Receive Date: 20120530
  Receipt Date: 20120515
  Transmission Date: 20120825
  Serious: Yes (Disabling, Other)
  Sender: FDA-Public Use
  Company Number: 2012P1032925

PATIENT
  Sex: Male

DRUGS (11)
  1. LASIX [Suspect]
     Indication: CARDIAC DISORDER
     Dosage: 40 MG
  2. ADVAIR DISKUS 250/50 [Suspect]
     Indication: CHRONIC OBSTRUCTIVE PULMONARY DISEASE
     Dosage: INH
     Route: 055
  3. WELCHOL [Suspect]
     Indication: GASTROINTESTINAL DISORDER
     Dosage: 625 MG
  4. NEXIUM [Suspect]
     Indication: GASTROOESOPHAGEAL REFLUX DISEASE
     Dosage: 40 MG
  5. VERAPAMIL [Suspect]
     Indication: CARDIAC DISORDER
     Dosage: 360 MG
  6. COUMADIN [Suspect]
     Indication: CARDIAC DISORDER
     Dosage: 5 MG
  7. SPIRIVA [Suspect]
     Indication: CHRONIC OBSTRUCTIVE PULMONARY DISEASE
  8. NITROSTAT [Suspect]
     Indication: CARDIAC DISORDER
     Dosage: 0.4 MG
  9. TOPROL-XL [Suspect]
     Indication: CARDIAC DISORDER
     Dosage: 100 MG
  10. TOVIAZ [Suspect]
     Indication: BLADDER DISORDER
     Dosage: 8 MG
  11. DIGOXIN [Suspect]
     Indication: CARDIAC DISORDER
     Dosage: 0.125 MG

REACTIONS (4)
  - IMMOBILE [None]
  - MALAISE [None]
  - MULTI-ORGAN FAILURE [None]
  - CARDIAC FAILURE [None]
